FAERS Safety Report 4394336-0 (Version None)
Quarter: 2004Q3

REPORT INFORMATION
  Report Type: 
  Country: None (occurrence: None)
  Receive Date: 20040707
  Receipt Date: 20040629
  Transmission Date: 20050211
  Serious: Yes (Death)
  Sender: FDA-Public Use
  Company Number: MK200407-0009-1

PATIENT
  Age: 49 Year
  Sex: Female

DRUGS (1)
  1. RESTORIL [Suspect]
     Dates: start: 20040622

REACTIONS (1)
  - UNEVALUABLE EVENT [None]
